FAERS Safety Report 18156223 (Version 1)
Quarter: 2020Q3

REPORT INFORMATION
  Report Type: Spontaneous
  Country: US (occurrence: US)
  Receive Date: 20200817
  Receipt Date: 20200817
  Transmission Date: 20201103
  Serious: No
  Sender: FDA-Public Use
  Company Number: US-RECORDATI RARE DISEASES-US-R13005-20-00067

PATIENT
  Sex: Female

DRUGS (1)
  1. TRANXENE [Suspect]
     Active Substance: CLORAZEPATE DIPOTASSIUM
     Indication: ANXIETY
     Route: 065

REACTIONS (13)
  - Emotional disorder [Unknown]
  - Drug ineffective [Unknown]
  - Emotional distress [Unknown]
  - Weight decreased [Unknown]
  - Insomnia [Unknown]
  - Depressed mood [Unknown]
  - Product availability issue [Unknown]
  - Stress [Unknown]
  - Frustration tolerance decreased [Unknown]
  - Loss of personal independence in daily activities [Unknown]
  - Illness [Unknown]
  - Depression [Unknown]
  - Eating disorder [Unknown]
